FAERS Safety Report 6102400-0 (Version None)
Quarter: 2009Q1

REPORT INFORMATION
  Report Type: 
  Country: None (occurrence: None)
  Receive Date: 20090227
  Receipt Date: 20080708
  Transmission Date: 20090719
  Serious: Yes (Other)
  Sender: FDA-Public Use
  Company Number: 574593

PATIENT
  Age: 16 Year
  Sex: Female
  Weight: 47.6 kg

DRUGS (1)
  1. ACCUTANE [Suspect]
     Indication: ACNE
     Dosage: 60 MG DAILY ORAL
     Route: 048
     Dates: start: 19990611, end: 19991211

REACTIONS (8)
  - BLOOD CHOLESTEROL INCREASED [None]
  - BLOOD TRIGLYCERIDES INCREASED [None]
  - COLITIS [None]
  - CROHN'S DISEASE [None]
  - DEPRESSION [None]
  - INFLAMMATORY BOWEL DISEASE [None]
  - PROCTITIS [None]
  - WISDOM TEETH REMOVAL [None]
